FAERS Safety Report 24888570 (Version 1)
Quarter: 2025Q1

REPORT INFORMATION
  Report Type: Spontaneous
  Country: US (occurrence: None)
  Receive Date: 20250123
  Receipt Date: 20250123
  Transmission Date: 20250409
  Serious: Yes (Hospitalization)
  Sender: FDA-CTU
  Company Number: None

PATIENT
  Age: 79 Year
  Sex: Male
  Weight: 118 kg

DRUGS (2)
  1. AMOXICILLIN\CLAVULANATE POTASSIUM [Suspect]
     Active Substance: AMOXICILLIN\CLAVULANATE POTASSIUM
     Indication: Dental disorder prophylaxis
     Dosage: FREQUENCY : TWICE A DAY;?
     Route: 048
     Dates: start: 20241224, end: 20241229
  2. BUPROPION [Suspect]
     Active Substance: BUPROPION

REACTIONS (4)
  - Liver function test increased [None]
  - Haematuria [None]
  - Drug-induced liver injury [None]
  - Hepatitis cholestatic [None]

NARRATIVE: CASE EVENT DATE: 20241225
